FAERS Safety Report 14774972 (Version 1)
Quarter: 2018Q2

REPORT INFORMATION
  Report Type: Spontaneous
  Country: ES (occurrence: ES)
  Receive Date: 20180412
  Receipt Date: 20180412
  Transmission Date: 20180711
  Serious: Yes (Other)
  Sender: FDA-Public Use
  Company Number: None

PATIENT
  Age: 37 Year
  Sex: Male
  Weight: 70 kg

DRUGS (2)
  1. NEXIUM? MUPS? 40 MG (ESOMEPRAZOLE) [Suspect]
     Active Substance: ESOMEPRAZOLE
     Indication: OESOPHAGITIS
     Dosage: ?          QUANTITY:1 TABLET(S);?
     Route: 048
  2. HARPAGOPHYUM PROCUMBENS (DEVIL^S CLAW) [Concomitant]

REACTIONS (1)
  - Mallet finger [None]
